FAERS Safety Report 9445794 (Version 2)
Quarter: 2014Q1

REPORT INFORMATION
  Report Type: Spontaneous
  Country: IL (occurrence: IL)
  Receive Date: 20130807
  Receipt Date: 20140113
  Transmission Date: 20141002
  Serious: Yes (Hospitalization)
  Sender: FDA-Public Use
  Company Number: PHHY2013IL082908

PATIENT
  Age: 18 Month
  Sex: Male

DRUGS (1)
  1. SALBUTAMOL [Suspect]
     Dosage: 60 ML
     Route: 048

REACTIONS (10)
  - Leukocytosis [Unknown]
  - Neutrophilia [Unknown]
  - Restlessness [Unknown]
  - Agitation [Unknown]
  - Sinus tachycardia [Recovered/Resolved]
  - Blood potassium decreased [Recovered/Resolved]
  - Blood glucose increased [Recovered/Resolved]
  - Toxicity to various agents [Unknown]
  - Accidental overdose [Unknown]
  - Electrocardiogram T wave amplitude decreased [Recovering/Resolving]
